FAERS Safety Report 8833227 (Version 3)
Quarter: 2012Q4

REPORT INFORMATION
  Report Type: 
  Country: US (occurrence: US)
  Receive Date: 20121010
  Receipt Date: 20121217
  Transmission Date: 20130627
  Serious: Yes (Other)
  Sender: FDA-Public Use
  Company Number: PHEH2012US019662

PATIENT
  Sex: Female
  Weight: 49.89 kg

DRUGS (4)
  1. RECLAST [Suspect]
     Dosage: UNK
     Route: 042
     Dates: start: 201205
  2. CITALOPRAM [Concomitant]
     Dosage: 40 mg, UNK
  3. AMITRIPTYLLIN [Concomitant]
  4. ROPINIROLE [Concomitant]
     Dosage: 1 mg, UNK

REACTIONS (8)
  - Weight decreased [Unknown]
  - Eye swelling [Unknown]
  - Arthralgia [Recovered/Resolved]
  - Bone pain [Recovered/Resolved]
  - Myalgia [Recovered/Resolved]
  - Dizziness [Unknown]
  - Back pain [Unknown]
  - Asthenia [Unknown]
